FAERS Safety Report 19609543 (Version 1)
Quarter: 2021Q3

REPORT INFORMATION
  Report Type: Spontaneous
  Country: US (occurrence: US)
  Receive Date: 20210726
  Receipt Date: 20210726
  Transmission Date: 20211014
  Serious: No
  Sender: FDA-Public Use
  Company Number: US-DRREDDYS-SPO/USA/21/0138141

PATIENT
  Age: 16 Year
  Sex: Male

DRUGS (1)
  1. ZENATANE [Suspect]
     Active Substance: ISOTRETINOIN
     Indication: PRODUCT USED FOR UNKNOWN INDICATION
     Dosage: RMA ISSUE DATE: 18/MARCH/2021 12:29:18 PM, 24/APRIL/2021 12:43:23 PM, 20/MAY/2021 10:08:46 AM, 23/JU

REACTIONS (1)
  - Therapy cessation [Unknown]
